FAERS Safety Report 5331625-7 (Version None)
Quarter: 2007Q2

REPORT INFORMATION
  Report Type: 
  Country: None (occurrence: None)
  Receive Date: 20070516
  Receipt Date: 20070508
  Transmission Date: 20071010
  Serious: Yes (Death, Other)
  Sender: FDA-Public Use
  Company Number: 163-21880-07050598

PATIENT

DRUGS (2)
  1. REVLIMID [Suspect]
     Indication: MULTIPLE MYELOMA
     Dosage: 25 MG, DAILY ON DAYS 1-21 OFF A 28-DAY YCLE, ORAL
     Route: 048
  2. DEXAMETHASONE [Suspect]
     Indication: MULTIPLE MYELOMA
     Dosage: 40 MG, DAILY ON DAYS 1-4, 9-12, 17-20 EACH CYCLE, ORAL
     Route: 048

REACTIONS (12)
  - ANXIETY [None]
  - DISEASE PROGRESSION [None]
  - DRUG TOXICITY [None]
  - FATIGUE [None]
  - INFECTION [None]
  - LUNG INFECTION [None]
  - MUSCULAR WEAKNESS [None]
  - NEUTROPENIA [None]
  - PNEUMONITIS [None]
  - PULMONARY EMBOLISM [None]
  - RASH [None]
  - STEM CELL TRANSPLANT [None]
